FAERS Safety Report 17333488 (Version 1)
Quarter: 2020Q1

REPORT INFORMATION
  Report Type: Spontaneous
  Country: US (occurrence: US)
  Receive Date: 20200111
  Receipt Date: 20200111
  Transmission Date: 20200409
  Serious: Yes (Hospitalization)
  Sender: FDA-Public Use
  Company Number: None

PATIENT
  Age: 40 Year
  Sex: Male
  Weight: 177 kg

DRUGS (8)
  1. PACLITAXEL. [Suspect]
     Active Substance: PACLITAXEL
     Dates: end: 20200109
  2. DEXAMETHASONE. [Concomitant]
     Active Substance: DEXAMETHASONE
  3. G-CSF (FILGRASTIM, AMGEN) [Suspect]
     Active Substance: FILGRASTIM
     Dates: end: 20191226
  4. CISPLATIN. [Suspect]
     Active Substance: CISPLATIN
     Dates: end: 20191213
  5. POLARAMINE [Concomitant]
     Active Substance: DEXCHLORPHENIRAMINE MALEATE
  6. AZANTAC [Concomitant]
     Active Substance: RANITIDINE HYDROCHLORIDE
  7. NEULASTA [Suspect]
     Active Substance: PEGFILGRASTIM
     Dates: end: 20191214
  8. IFOSFAMIDE. [Suspect]
     Active Substance: IFOSFAMIDE

REACTIONS (1)
  - Anaphylactic shock [None]

NARRATIVE: CASE EVENT DATE: 20191230
